FAERS Safety Report 4701491-9 (Version None)
Quarter: 2005Q2

REPORT INFORMATION
  Report Type: 
  Country: None (occurrence: None)
  Receive Date: 20050627
  Receipt Date: 20050615
  Transmission Date: 20051028
  Serious: Yes (Hospitalization)
  Sender: FDA-Public Use
  Company Number: HQWYE476115JUN05

PATIENT
  Age: 97 Year
  Sex: Male

DRUGS (10)
  1. CORDARONE [Suspect]
     Indication: ATRIAL FIBRILLATION
     Dosage: 100 MG 5 X PER 1 WK, ORAL
     Route: 048
  2. CORDARONE [Suspect]
     Indication: ATRIAL FLUTTER
     Dosage: 100 MG 5 X PER 1 WK, ORAL
     Route: 048
  3. CORTANCYL (PREDNISONE) [Suspect]
     Indication: POLYARTERITIS NODOSA
     Dosage: 35 MG 1 X PER 1 DAY, ORAL
     Route: 048
     Dates: start: 20050201
  4. COUMADIN [Suspect]
     Dosage: 1 UNIT 1 X PER 1 DAY, ORAL
     Route: 048
     Dates: end: 20050321
  5. COUMADIN [Suspect]
     Dates: start: 20050325, end: 20050329
  6. OMEPRAZOLE [Suspect]
     Dosage: 20 MG 1 X PER 1 DAY, ORAL
     Route: 048
  7. OFLOXACIN [Suspect]
     Indication: URINARY TRACT INFECTION
     Dosage: 400 MG 1 X PER 1 DAY, ORAL
     Route: 048
     Dates: start: 20050310, end: 20050321
  8. LASIX [Concomitant]
  9. CALCIUM WITH VITAMIN D (CALCIUM PHOSPHATE/CALCIUM SODIUM LACTATE/ERGOC [Concomitant]
  10. LEXOMIL (BROMAZEPAM) [Concomitant]

REACTIONS (6)
  - ANAEMIA [None]
  - DIVERTICULUM [None]
  - DRUG INTERACTION [None]
  - GASTROINTESTINAL HAEMORRHAGE [None]
  - INTERNATIONAL NORMALISED RATIO INCREASED [None]
  - RECTAL HAEMORRHAGE [None]
